FAERS Safety Report 24664864 (Version 4)
Quarter: 2025Q1

REPORT INFORMATION
  Report Type: Spontaneous
  Country: US (occurrence: US)
  Receive Date: 20241126
  Receipt Date: 20250227
  Transmission Date: 20250408
  Serious: No
  Sender: BLUEPRINT MEDICINES
  Company Number: US-Blueprint Medicines Corporation-5430

PATIENT
  Age: 62 Year
  Sex: Female

DRUGS (4)
  1. AYVAKIT [Suspect]
     Active Substance: AVAPRITINIB
     Indication: Haematopoietic neoplasm
     Route: 065
     Dates: start: 20241012
  2. AYVAKIT [Suspect]
     Active Substance: AVAPRITINIB
     Indication: Mastocytoma
     Route: 048
     Dates: start: 20241012
  3. AYVAKIT [Suspect]
     Active Substance: AVAPRITINIB
     Indication: Malignant mast cell neoplasm
     Route: 065
     Dates: start: 20241012
  4. ZITHROMAX [Suspect]
     Active Substance: AZITHROMYCIN DIHYDRATE
     Indication: Product used for unknown indication
     Route: 065

REACTIONS (18)
  - Lymphadenopathy [Not Recovered/Not Resolved]
  - Arthralgia [Unknown]
  - Periorbital swelling [Unknown]
  - Headache [Recovering/Resolving]
  - Nausea [Unknown]
  - Parosmia [Unknown]
  - Nasopharyngitis [Unknown]
  - Taste disorder [Unknown]
  - Lacrimation increased [Unknown]
  - Eye pruritus [Unknown]
  - Fatigue [Unknown]
  - Bronchitis [Unknown]
  - Immune system disorder [Unknown]
  - Illness [Unknown]
  - Respiratory tract infection [Unknown]
  - Swelling face [Unknown]
  - Migraine [Unknown]
  - Visual impairment [Recovered/Resolved]

NARRATIVE: CASE EVENT DATE: 20241219
